FAERS Safety Report 14326659 (Version 3)
Quarter: 2018Q1

REPORT INFORMATION
  Report Type: Spontaneous
  Country: US (occurrence: US)
  Receive Date: 20171227
  Receipt Date: 20180209
  Transmission Date: 20180509
  Serious: No
  Sender: FDA-Public Use
  Company Number: US-TEVA-2017-US-836110

PATIENT
  Sex: Female

DRUGS (4)
  1. MULTIVITAMIN - ANACID [Concomitant]
     Route: 065
  2. AMPHETAMINE W/DEXTROAMPHETAMINE [Suspect]
     Active Substance: AMPHETAMINE SULFATE\DEXTROAMPHETAMINE
     Indication: ATTENTION DEFICIT/HYPERACTIVITY DISORDER
     Dosage: 60 MILLIGRAM DAILY;
     Dates: start: 20171121
  3. ZOCOR [Concomitant]
     Active Substance: SIMVASTATIN
     Dosage: 20 MILLIGRAM DAILY;
     Route: 065
  4. SABOXEN [Concomitant]
     Dosage: 16 MILLIGRAM DAILY;
     Route: 065

REACTIONS (1)
  - Drug screen negative [Recovered/Resolved]

NARRATIVE: CASE EVENT DATE: 2017
